FAERS Safety Report 4762971-3 (Version None)
Quarter: 2005Q3

REPORT INFORMATION
  Report Type: 
  Country: None (occurrence: None)
  Receive Date: 20050907
  Receipt Date: 20050829
  Transmission Date: 20060218
  Serious: Yes (Death, Hospitalization)
  Sender: FDA-Public Use
  Company Number: NO-MERCK-0508NOR00028

PATIENT
  Age: 71 Year
  Sex: Male

DRUGS (7)
  1. PROSCAR [Suspect]
     Route: 048
     Dates: start: 19960101
  2. METOPROLOL TARTRATE [Suspect]
     Indication: TACHYCARDIA
     Route: 048
     Dates: start: 20050412, end: 20050513
  3. DIAZEPAM [Concomitant]
     Route: 048
     Dates: start: 19930809
  4. VERAPAMIL HYDROCHLORIDE [Suspect]
     Indication: TACHYCARDIA
     Route: 048
     Dates: start: 20050131, end: 20050406
  5. ATORVASTATIN CALCIUM [Suspect]
     Indication: HYPERCHOLESTEROLAEMIA
     Route: 048
     Dates: start: 20040225, end: 20050412
  6. METFORMIN HYDROCHLORIDE [Suspect]
     Indication: DIABETES MELLITUS
     Route: 048
     Dates: start: 20030310
  7. ASPIRIN AND MAGNESIUM OXIDE [Concomitant]
     Indication: PROPHYLAXIS
     Route: 048
     Dates: start: 20030310, end: 20050412

REACTIONS (2)
  - HEPATIC FAILURE [None]
  - HEPATITIS [None]
